FAERS Safety Report 16946692 (Version 1)
Quarter: 2019Q4

REPORT INFORMATION
  Report Type: Spontaneous
  Country: US (occurrence: US)
  Receive Date: 20191022
  Receipt Date: 20191022
  Transmission Date: 20200122
  Serious: No
  Sender: FDA-Public Use
  Company Number: US-PFIZER INC-2019452771

PATIENT
  Age: 68 Year
  Sex: Female
  Weight: 105 kg

DRUGS (1)
  1. SOLU-MEDROL [Suspect]
     Active Substance: METHYLPREDNISOLONE SODIUM SUCCINATE
     Indication: UPPER RESPIRATORY TRACT INFECTION
     Dosage: UNK

REACTIONS (3)
  - Off label use [Unknown]
  - Blood glucose increased [Unknown]
  - Product use in unapproved indication [Unknown]
